FAERS Safety Report 5935364-0 (Version None)
Quarter: 2008Q4

REPORT INFORMATION
  Report Type: 
  Country: None (occurrence: None)
  Receive Date: 20081030
  Receipt Date: 20081027
  Transmission Date: 20090506
  Serious: Yes (Hospitalization)
  Sender: FDA-Public Use
  Company Number: NL-BRISTOL-MYERS SQUIBB COMPANY-14387070

PATIENT
  Age: 63 Year
  Sex: Female

DRUGS (3)
  1. ABILIFY [Suspect]
     Dates: start: 20080708
  2. CLOZAPINE [Concomitant]
  3. LITHIUM CARBONATE [Concomitant]

REACTIONS (1)
  - PULMONARY EMBOLISM [None]
